FAERS Safety Report 5314231-X (Version None)
Quarter: 2007Q2

REPORT INFORMATION
  Report Type: 
  Country: None (occurrence: None)
  Receive Date: 20070426
  Receipt Date: 20070413
  Transmission Date: 20071010
  Serious: No
  Sender: FDA-Public Use
  Company Number: B0465280A

PATIENT
  Sex: Male
  Weight: 3.1752 kg

DRUGS (6)
  1. PAXIL [Suspect]
     Indication: BIPOLAR DISORDER
     Dosage: 10 MG / PER DAY/ TRANSPLACENTARY
     Route: 064
     Dates: start: 20041202, end: 20041219
  2. METHOTRIMEPRAZINE TABLET (METHOTRIMEPRAZINE) [Suspect]
     Indication: DRUG USE FOR UNKNOWN INDICATION
     Dosage: 25 MG/PER DAY; TRANSPLACENTARY
     Route: 064
     Dates: start: 20041207, end: 20041219
  3. FLUNITRAZEPAM TABLET (FLUNITRAZEPAM) [Suspect]
     Indication: DRUG USE FOR UNKNOWN INDICATION
     Dosage: 8 MG/ PER DAY/ TRANSPLACENTARY
     Route: 064
     Dates: start: 20041210, end: 20041219
  4. SULPIRIDE CAPSULE (SULPIRIDE) [Suspect]
     Indication: DRUG USE FOR UNKNOWN INDICATION
     Dosage: 200 MG; THREE TIMES PER DAY/ TRANS
     Dates: start: 20041210, end: 20041219
  5. ESKALITH [Suspect]
     Indication: DRUG USE FOR UNKNOWN INDICATION
     Dosage: 200 MG/THREE TIMES PER DAY; TRANS
     Dates: start: 20041207, end: 20041219
  6. MILNACIPRAN HYDROCHLORIDE [Concomitant]

REACTIONS (7)
  - APGAR SCORE LOW [None]
  - AREFLEXIA [None]
  - DRUG EXPOSURE DURING PREGNANCY [None]
  - INFANTILE APNOEIC ATTACK [None]
  - NEONATAL ASPHYXIA [None]
  - NEONATAL DISORDER [None]
  - RESPIRATORY DISORDER NEONATAL [None]
